FAERS Safety Report 7519260-3 (Version None)
Quarter: 2011Q2

REPORT INFORMATION
  Report Type: 
  Country: None (occurrence: None)
  Receive Date: 20110602
  Receipt Date: 20110519
  Transmission Date: 20111010
  Serious: Yes (Other)
  Sender: FDA-Public Use
  Company Number: A0929555A

PATIENT
  Age: 26 Year
  Sex: Female
  Weight: 54.5 kg

DRUGS (2)
  1. MIRENA [Concomitant]
     Indication: CONTRACEPTION
  2. NICODERM [Suspect]
     Indication: SMOKING CESSATION THERAPY
     Dosage: 21MG SINGLE DOSE
     Route: 062
     Dates: start: 20100228, end: 20100228

REACTIONS (2)
  - LOSS OF CONSCIOUSNESS [None]
  - DIZZINESS [None]
